FAERS Safety Report 8808539 (Version 2)
Quarter: 2012Q4

REPORT INFORMATION
  Report Type: 
  Country: US (occurrence: US)
  Receive Date: 20120926
  Receipt Date: 20121107
  Transmission Date: 20130627
  Serious: Yes (Death, Hospitalization, Other)
  Sender: FDA-Public Use
  Company Number: PHEH2012US018507

PATIENT
  Age: 76 Year
  Sex: Female
  Weight: 126 kg

DRUGS (18)
  1. EXJADE [Suspect]
     Indication: MYELODYSPLASTIC SYNDROME TRANSFORMATION
     Dosage: 500 mg, QD
     Route: 048
     Dates: start: 20120425
  2. ALLEGRA [Concomitant]
     Dosage: UNK UKN, UNK
  3. GLIPIZIDE [Concomitant]
     Dosage: UNK UKN, UNK
  4. METFORMIN HCL [Concomitant]
     Dosage: UNK UKN, UNK
  5. METOPROLOL TARTRATE [Concomitant]
     Dosage: UNK UKN, UNK
  6. OSCAL D [Concomitant]
     Dosage: UNK UKN, UNK
  7. TRADJENTA [Concomitant]
     Dosage: UNK UKN, UNK
  8. DOXYCYCLINE [Concomitant]
     Dosage: 100 mg, BID
  9. OMNICEF [Concomitant]
     Dosage: 300 mg, BID
  10. PERCOCET [Concomitant]
     Dosage: 1 DF, every 6 hrs
  11. ZOCOR [Concomitant]
     Dosage: 40 mg, at bed time
  12. METOPROLOL [Concomitant]
     Dosage: 25 mg, BID, daily
  13. LANTUS [Concomitant]
     Dosage: 22 U, at bed time
  14. MULTIVITAMINS [Concomitant]
     Dosage: 1 DF, daily
  15. PROCRIT [Concomitant]
     Indication: MYELODYSPLASTIC SYNDROME
     Dosage: UNK UKN, UNK
     Route: 058
     Dates: start: 20110815
  16. INSULIN [Concomitant]
     Indication: DIABETES MELLITUS
     Dosage: UNK UKN, UNK
  17. TRANSFUSIONS [Concomitant]
     Dosage: UNK UKN, UNK
  18. PLATELETS [Concomitant]
     Dosage: UNK UKN, UNK

REACTIONS (12)
  - Myelodysplastic syndrome [Fatal]
  - Pneumonia [Unknown]
  - Mental impairment [Unknown]
  - Oxygen saturation decreased [Unknown]
  - Vaginal abscess [Unknown]
  - Mouth haemorrhage [Unknown]
  - Ecchymosis [Unknown]
  - Blood pressure decreased [Unknown]
  - General physical condition abnormal [Unknown]
  - Hyponatraemia [Recovering/Resolving]
  - Pain [Unknown]
  - Fatigue [Unknown]
